FAERS Safety Report 9085850 (Version 1)
Quarter: 2013Q1

REPORT INFORMATION
  Report Type: Report from Study
  Country: US (occurrence: US)
  Receive Date: 20130131
  Receipt Date: 20130131
  Transmission Date: 20140127
  Serious: No
  Sender: FDA-Public Use
  Company Number: US-ABBOTT-12P-163-1002722-00

PATIENT
  Age: 41 Year
  Sex: Female

DRUGS (5)
  1. HUMIRA [Suspect]
     Indication: CROHN^S DISEASE
     Dosage: 160MG ON 18 OCT 2012
     Dates: start: 20121018
  2. LISINOPRIL [Concomitant]
     Indication: HYPERTENSION
     Dosage: DAILY
  3. SPIRONOLACTONE [Concomitant]
     Indication: FLUID RETENTION
     Dosage: DAILY
  4. PENTASA [Concomitant]
     Indication: CROHN^S DISEASE
  5. FIORICET [Concomitant]
     Indication: TENSION HEADACHE

REACTIONS (2)
  - Injection site reaction [Not Recovered/Not Resolved]
  - Injection site pain [Not Recovered/Not Resolved]
